FAERS Safety Report 26149795 (Version 1)
Quarter: 2025Q4

REPORT INFORMATION
  Report Type: Spontaneous
  Country: US (occurrence: None)
  Receive Date: 20251211
  Receipt Date: 20251211
  Transmission Date: 20260118
  Serious: Yes (Death)
  Sender: FDA-CTU
  Company Number: None

PATIENT
  Age: 69 Year
  Sex: Female
  Weight: 47.7 kg

DRUGS (16)
  1. COLLAGENASE SANTYL [Suspect]
     Active Substance: COLLAGENASE CLOSTRIDIUM HISTOLYTICUM
     Indication: Ulcer
     Dosage: 250U/G #240G DAILY TOPICAL
     Route: 061
  2. AMOXICILLIN\CLAVULANIC ACID [Concomitant]
     Active Substance: AMOXICILLIN\CLAVULANIC ACID
  3. DULOXETINE [Concomitant]
     Active Substance: DULOXETINE
  4. GABAPENTIN [Concomitant]
     Active Substance: GABAPENTIN
  5. METHOTREXATE [Concomitant]
     Active Substance: METHOTREXATE
  6. FUROSEMIDE [Concomitant]
     Active Substance: FUROSEMIDE
  7. 0XYCODONE [Concomitant]
  8. CELECOXIB [Concomitant]
     Active Substance: CELECOXIB
     Dosage: 250U/G #240G DAILY TOPICAL
     Route: 061
  9. FERROUS SULFATE [Concomitant]
     Active Substance: FERROUS SULFATE
     Dosage: 250U/G #240G DAILY TOPICAL
     Route: 061
  10. LEFLUNOMIDE [Concomitant]
     Active Substance: LEFLUNOMIDE
     Dosage: 250U/G #240G DAILY TOPICAL
     Route: 061
  11. NYSTATIN [Concomitant]
     Active Substance: NYSTATIN
     Dosage: 250U/G #240G DAILY TOPICAL
     Route: 061
  12. PREDNISONE [Concomitant]
     Active Substance: PREDNISONE
     Dosage: 250U/G #240G DAILY TOPICAL
     Route: 061
  13. DICLOFENAC [Concomitant]
     Active Substance: DICLOFENAC
  14. FUROSEMIDE [Concomitant]
     Active Substance: FUROSEMIDE
  15. MELOXICAM [Concomitant]
     Active Substance: MELOXICAM
  16. OMEPRAZOLE [Concomitant]
     Active Substance: OMEPRAZOLE

REACTIONS (1)
  - Death [None]

NARRATIVE: CASE EVENT DATE: 20251111
